FAERS Safety Report 13442547 (Version 1)
Quarter: 2017Q2

REPORT INFORMATION
  Report Type: Spontaneous
  Country: US (occurrence: US)
  Receive Date: 20170414
  Receipt Date: 20170414
  Transmission Date: 20170830
  Serious: Yes (Other)
  Sender: FDA-Public Use
  Company Number: None

PATIENT
  Age: 57 Year
  Sex: Male
  Weight: 83.1 kg

DRUGS (5)
  1. CARVEDILOL. [Concomitant]
     Active Substance: CARVEDILOL
  2. FLUORESCEIN SODIUM. [Suspect]
     Active Substance: FLUORESCEIN SODIUM
     Indication: PRODUCT USED FOR UNKNOWN INDICATION
     Dosage: 500 MG (5 ML) IV X1 DOSE
     Route: 042
     Dates: start: 20161216
  3. LOSARTAN. [Concomitant]
     Active Substance: LOSARTAN
  4. TRAZODONE [Concomitant]
     Active Substance: TRAZODONE HYDROCHLORIDE
  5. ESZOPLIESLIONE [Concomitant]

REACTIONS (6)
  - Presyncope [None]
  - Heart rate decreased [None]
  - Feeling cold [None]
  - Hyperhidrosis [None]
  - Pallor [None]
  - Blood pressure increased [None]

NARRATIVE: CASE EVENT DATE: 20161216
